FAERS Safety Report 4315738-4 (Version None)
Quarter: 2004Q1

REPORT INFORMATION
  Report Type: 
  Country: None (occurrence: None)
  Receive Date: 20040310
  Receipt Date: 20040227
  Transmission Date: 20041129
  Serious: Yes (Hospitalization)
  Sender: FDA-Public Use
  Company Number: 2004UW03814

PATIENT
  Age: 80 Year
  Sex: Male
  Weight: 68.0396 kg

DRUGS (7)
  1. ZOLADEX [Suspect]
     Indication: PROSTATE CANCER
     Dosage: 10.8 MG Q3MO SQ
     Route: 058
  2. APO-DOXAZOSIN [Concomitant]
  3. APO-NAPROXEN [Concomitant]
  4. ARTHROTEC [Concomitant]
  5. APO-METOCLOP [Concomitant]
  6. CIPRO [Concomitant]
  7. ASPIRIN [Concomitant]

REACTIONS (5)
  - ASTHENIA [None]
  - BRONCHOSPASM [None]
  - DYSPNOEA [None]
  - RASH GENERALISED [None]
  - WHEEZING [None]
